FAERS Safety Report 7512690-5 (Version None)
Quarter: 2011Q2

REPORT INFORMATION
  Report Type: 
  Country: None (occurrence: None)
  Receive Date: 20110531
  Receipt Date: 20090930
  Transmission Date: 20111010
  Serious: Yes (Hospitalization, Other)
  Sender: FDA-Public Use
  Company Number: US-BAYER-200934437NA

PATIENT
  Age: 47 Year
  Sex: Female
  Weight: 58 kg

DRUGS (19)
  1. TOPROL-XL [Concomitant]
     Dosage: 25 MG, QD
     Route: 048
     Dates: start: 20030101
  2. HEPARIN [Concomitant]
     Dosage: 10 MU
     Route: 042
  3. PLATELETS [Concomitant]
     Dosage: 1 UNIT
     Route: 042
     Dates: start: 20030709
  4. TRASYLOL [Suspect]
     Indication: TRICUSPID VALVE REPAIR
     Dosage: 1 ML TEST DOSE
     Route: 042
     Dates: start: 20030709, end: 20030709
  5. COUMADIN [Concomitant]
     Dosage: VARIED PER PTT VALUE
     Route: 048
     Dates: start: 19890101
  6. MILRINONE [Concomitant]
     Dosage: 20
     Route: 042
     Dates: start: 20030709
  7. EPINEPHRINE [Concomitant]
     Dosage: 1:1000
     Route: 042
     Dates: start: 20030709
  8. TRASYLOL [Suspect]
     Indication: AORTIC VALVE REPLACEMENT
     Dosage: 20/1000
     Route: 042
     Dates: start: 20030709, end: 20030709
  9. COZAAR [Concomitant]
     Dosage: UNK
     Route: 048
     Dates: start: 20030101
  10. COLACE [Concomitant]
     Dosage: 100 MG, BID
  11. TRASYLOL [Suspect]
     Indication: CARDIAC PACEMAKER INSERTION
  12. DARVOCET [Concomitant]
     Dosage: 1 TO 2 EVERY 4 HOURS AS NEEDED FOR PAIN
     Route: 048
  13. LEVOPHED [Concomitant]
     Dosage: UNK
     Route: 042
     Dates: start: 20030709
  14. FENTANYL [Concomitant]
     Dosage: 20 ML
     Route: 042
     Dates: start: 20030709
  15. PLASMA [Concomitant]
     Dosage: 1 UNIT
     Route: 042
     Dates: start: 20030709
  16. ASPIRIN [Concomitant]
     Dosage: 81 MG
     Route: 048
     Dates: start: 20030101
  17. PREVACID [Concomitant]
     Dosage: 30 MG, QD
     Route: 048
  18. VASOPRESSIN [Concomitant]
     Dosage: 10
     Route: 042
     Dates: start: 20030709
  19. RED BLOOD CELLS [Concomitant]
     Dosage: 2 UNITS
     Route: 042
     Dates: start: 20030709

REACTIONS (10)
  - EMOTIONAL DISTRESS [None]
  - STRESS [None]
  - FEAR [None]
  - PAIN [None]
  - ANXIETY [None]
  - RENAL IMPAIRMENT [None]
  - RENAL INJURY [None]
  - RENAL FAILURE [None]
  - INJURY [None]
  - UNEVALUABLE EVENT [None]
